FAERS Safety Report 7860872-5 (Version None)
Quarter: 2011Q4

REPORT INFORMATION
  Report Type: 
  Country: None (occurrence: None)
  Receive Date: 20111027
  Receipt Date: 20111018
  Transmission Date: 20120403
  Serious: Yes (Hospitalization)
  Sender: FDA-Public Use
  Company Number: US-ASTRAZENECA-2011SE57379

PATIENT
  Age: 56 Year
  Sex: Female
  Weight: 93.4 kg

DRUGS (23)
  1. SEROQUEL [Suspect]
     Indication: BIPOLAR DISORDER
     Route: 048
     Dates: start: 20101001
  2. SEROQUEL [Suspect]
     Route: 048
     Dates: start: 20110301
  3. SYMBICORT [Suspect]
     Indication: ASTHMA
     Dosage: 160 MCG TWO PUFFS TWICE DAILY
     Route: 055
  4. ALLEGRA [Concomitant]
  5. DEPACOLT [Concomitant]
  6. SEROQUEL [Suspect]
     Indication: SLEEP DISORDER
     Route: 048
     Dates: start: 20101001
  7. CYMBALTA [Suspect]
     Route: 065
  8. METOPROLOL TARTRATE [Concomitant]
  9. PROLANE INHALER [Concomitant]
  10. CYCLOPHOSPHAMIDE [Concomitant]
  11. SEROQUEL [Suspect]
     Route: 048
     Dates: start: 20110301
  12. TRIAMPHENOLONE [Concomitant]
  13. CRESTOR [Suspect]
     Indication: BLOOD CHOLESTEROL INCREASED
     Route: 048
  14. PATANOL [Suspect]
     Route: 065
  15. LIPITOR [Concomitant]
     Indication: BLOOD CHOLESTEROL
  16. MULTI-VITAMINS [Concomitant]
  17. SEROQUEL [Suspect]
     Route: 048
     Dates: start: 20110301
  18. CALCIUM CARBONATE [Concomitant]
  19. SEROQUEL [Suspect]
     Indication: MAJOR DEPRESSION
     Route: 048
     Dates: start: 20101001
  20. SYMBICORT [Suspect]
     Indication: CHRONIC OBSTRUCTIVE PULMONARY DISEASE
     Dosage: 160 MCG TWO PUFFS TWICE DAILY
     Route: 055
  21. NEXIUM [Suspect]
     Indication: GASTROOESOPHAGEAL REFLUX DISEASE
     Route: 048
     Dates: start: 20100101
  22. SINGULAIR [Concomitant]
     Indication: ASTHMA
  23. EPIPHEN [Concomitant]
     Indication: ARTHROPOD STING

REACTIONS (6)
  - ABDOMINAL DISCOMFORT [None]
  - NASAL DISCOMFORT [None]
  - DEPRESSION [None]
  - THERAPEUTIC RESPONSE INCREASED [None]
  - OSTEOPENIA [None]
  - EYE PRURITUS [None]
